FAERS Safety Report 5044132-6 (Version None)
Quarter: 2006Q2

REPORT INFORMATION
  Report Type: 
  Country: None (occurrence: None)
  Receive Date: 20060601
  Receipt Date: 20060121
  Transmission Date: 20061013
  Serious: No
  Sender: FDA-Public Use
  Company Number: 2006PV007444

PATIENT
  Age: 72 Year
  Sex: Male
  Weight: 80.7403 kg

DRUGS (9)
  1. BYETTA [Suspect]
     Indication: DIABETES MELLITUS NON-INSULIN-DEPENDENT
     Dosage: 5 MCG;BID;SC
     Route: 058
     Dates: start: 20051201
  2. BYETTA [Suspect]
     Indication: DIABETES MELLITUS NON-INSULIN-DEPENDENT
     Dosage: 5 MCG;BID;SC
     Route: 058
     Dates: start: 20051201
  3. BYETTA [Suspect]
     Indication: DIABETES MELLITUS NON-INSULIN-DEPENDENT
     Dosage: 5 MCG;BID;SC
     Route: 058
     Dates: start: 20060209
  4. BYETTA [Suspect]
  5. LIPITOR [Suspect]
     Indication: DRUG USE FOR UNKNOWN INDICATION
     Dosage: 10 MG;QD
     Dates: start: 20060209
  6. METFORMIN [Concomitant]
  7. METAMUCIL-2 [Concomitant]
  8. BOWEL SOFTENERS [Concomitant]
  9. ENEMAS [Concomitant]

REACTIONS (2)
  - CONSTIPATION [None]
  - FAECES HARD [None]
